FAERS Safety Report 23906256 (Version 2)
Quarter: 2024Q3

REPORT INFORMATION
  Report Type: Spontaneous
  Country: US (occurrence: US)
  Receive Date: 20240528
  Receipt Date: 20240821
  Transmission Date: 20241017
  Serious: No
  Sender: SANOFI AVENTIS
  Company Number: US-SA-SAC20240521001116

PATIENT
  Age: 81 Year
  Sex: Female

DRUGS (25)
  1. DUPIXENT [Suspect]
     Active Substance: DUPILUMAB
     Indication: Dermatitis
     Dosage: 200 MG, QOW
     Route: 058
     Dates: start: 20240425
  2. ENBREL [Concomitant]
     Active Substance: BENZYL ALCOHOL\ETANERCEPT
  3. ENBREL [Concomitant]
     Active Substance: BENZYL ALCOHOL\ETANERCEPT
  4. BUPROPION [Concomitant]
     Active Substance: BUPROPION
  5. BUPROPION [Concomitant]
     Active Substance: BUPROPION
  6. METHOTREXATE [Concomitant]
     Active Substance: METHOTREXATE
  7. METHOTREXATE [Concomitant]
     Active Substance: METHOTREXATE
  8. FOLIC ACID [Concomitant]
     Active Substance: FOLIC ACID
  9. FOLIC ACID [Concomitant]
     Active Substance: FOLIC ACID
  10. VITAMIN D3 [Concomitant]
     Active Substance: CHOLECALCIFEROL
  11. VITAMIN D3 [Concomitant]
     Active Substance: CHOLECALCIFEROL
  12. TREMFYA [Concomitant]
     Active Substance: GUSELKUMAB
  13. TREMFYA [Concomitant]
     Active Substance: GUSELKUMAB
  14. STELARA [Concomitant]
     Active Substance: USTEKINUMAB
  15. STELARA [Concomitant]
     Active Substance: USTEKINUMAB
  16. IVERMECTIN [Concomitant]
     Active Substance: IVERMECTIN
  17. IVERMECTIN [Concomitant]
     Active Substance: IVERMECTIN
  18. METRONIDAZOLE [Concomitant]
     Active Substance: METRONIDAZOLE
  19. METRONIDAZOLE [Concomitant]
     Active Substance: METRONIDAZOLE
  20. AZELAIC ACID [Concomitant]
     Active Substance: AZELAIC ACID
  21. AZELAIC ACID [Concomitant]
     Active Substance: AZELAIC ACID
  22. NIACINAMIDE [Concomitant]
     Active Substance: NIACINAMIDE
  23. NIACINAMIDE [Concomitant]
     Active Substance: NIACINAMIDE
  24. PROSACEA [Concomitant]
     Active Substance: SULFUR
  25. COSENTYX [Concomitant]
     Active Substance: SECUKINUMAB

REACTIONS (3)
  - Rosacea [Unknown]
  - Giant cell arteritis [Unknown]
  - Product use in unapproved indication [Unknown]

NARRATIVE: CASE EVENT DATE: 20240425
